FAERS Safety Report 4398356-1 (Version None)
Quarter: 2004Q3

REPORT INFORMATION
  Report Type: 
  Country: None (occurrence: None)
  Receive Date: 20040714
  Receipt Date: 20040714
  Transmission Date: 20050211
  Serious: Yes (Hospitalization)
  Sender: FDA-Public Use
  Company Number: None

PATIENT
  Age: 84 Year
  Sex: Female
  Weight: 44.4525 kg

DRUGS (11)
  1. WARFARIN SODIUM [Suspect]
     Indication: ATRIAL FIBRILLATION
     Dosage: 4.5 MG PO DAILY CHRONIC
     Route: 048
  2. FLAGYL [Suspect]
     Indication: CLOSTRIDIAL INFECTION
     Dosage: 500 MG TID
  3. ARICEPT [Concomitant]
  4. COLACE [Concomitant]
  5. VASOTEC [Concomitant]
  6. LANOXIN [Concomitant]
  7. FOSAMAX [Concomitant]
  8. OS CAL [Concomitant]
  9. SOTALOL HCL [Concomitant]
  10. ULTRACET [Concomitant]
  11. LEVAQUIN [Concomitant]

REACTIONS (8)
  - ANAEMIA [None]
  - BACK PAIN [None]
  - BLOOD PRESSURE DIASTOLIC DECREASED [None]
  - CLOSTRIDIAL INFECTION [None]
  - COAGULOPATHY [None]
  - INTERNATIONAL NORMALISED RATIO INCREASED [None]
  - RETROPERITONEAL HAEMORRHAGE [None]
  - SYNCOPE [None]
